FAERS Safety Report 18101701 (Version 2)
Quarter: 2020Q3

REPORT INFORMATION
  Report Type: Spontaneous
  Country: AT (occurrence: AT)
  Receive Date: 20200802
  Receipt Date: 20200825
  Transmission Date: 20201103
  Serious: Yes (Hospitalization, Other)
  Sender: FDA-Public Use
  Company Number: AT-SA-2020SA189561

PATIENT

DRUGS (13)
  1. LAMOTRIGINE. [Suspect]
     Active Substance: LAMOTRIGINE
     Dosage: UNK
     Route: 065
  2. LITHIUM. [Suspect]
     Active Substance: LITHIUM
     Dosage: UNK
     Route: 065
  3. MAPROTILIN [Suspect]
     Active Substance: MAPROTILINE
     Dosage: UNK
     Route: 065
  4. TOPIRAMATE. [Suspect]
     Active Substance: TOPIRAMATE
     Dosage: UNK
     Route: 065
  5. QUETIAPINE FUMARATE. [Suspect]
     Active Substance: QUETIAPINE FUMARATE
     Dosage: UNK
     Route: 065
  6. PREGABALIN. [Suspect]
     Active Substance: PREGABALIN
     Dosage: UNK
     Route: 065
  7. CLOMIPRAMIN [Suspect]
     Active Substance: CLOMIPRAMINE
     Dosage: 12.5 MG, QD
     Route: 042
  8. MOCLOBEMID [Suspect]
     Active Substance: MOCLOBEMIDE
     Dosage: UNK
     Route: 065
  9. AMITRIPTYLINE HYDROCHLORIDE. [Suspect]
     Active Substance: AMITRIPTYLINE HYDROCHLORIDE
     Dosage: UNK
     Route: 065
  10. CLOMIPRAMIN [Suspect]
     Active Substance: CLOMIPRAMINE
     Dosage: 75 MG, QD
     Route: 048
  11. CLOMIPRAMIN [Suspect]
     Active Substance: CLOMIPRAMINE
     Dosage: 25 MG, QD,5
     Route: 042
  12. CLOMIPRAMIN [Suspect]
     Active Substance: CLOMIPRAMINE
     Dosage: UNK
     Route: 048
  13. CLOMIPRAMIN [Suspect]
     Active Substance: CLOMIPRAMINE
     Dosage: 150 MG, QD
     Route: 048

REACTIONS (22)
  - Tachycardia [Unknown]
  - Hypotension [Unknown]
  - Chest discomfort [Unknown]
  - Nausea [Unknown]
  - Decreased interest [Unknown]
  - Depressed mood [Unknown]
  - Tremor [Unknown]
  - Weight decreased [Unknown]
  - Palpitations [Unknown]
  - Decreased activity [Unknown]
  - Disturbance in attention [Unknown]
  - Drug ineffective [Unknown]
  - Sleep disorder [Unknown]
  - Hospitalisation [Unknown]
  - Suicidal ideation [Unknown]
  - Restlessness [Unknown]
  - Dizziness [Unknown]
  - Decreased appetite [Unknown]
  - Abdominal discomfort [Unknown]
  - Fracture [Unknown]
  - Depression [Unknown]
  - Feeling abnormal [Unknown]

NARRATIVE: CASE EVENT DATE: 2014
